FAERS Safety Report 5599487-0 (Version None)
Quarter: 2007Q4

REPORT INFORMATION
  Report Type: 
  Country: None (occurrence: None)
  Receive Date: 20071231
  Receipt Date: 20070511
  Transmission Date: 20080405
  Serious: Yes (Other)
  Sender: FDA-Public Use
  Company Number: 2007038910

PATIENT

DRUGS (1)
  1. FLUCONAZOLE [Suspect]
     Indication: COCCIDIOIDOMYCOSIS

REACTIONS (2)
  - AGRANULOCYTOSIS [None]
  - DRUG HYPERSENSITIVITY [None]
